FAERS Safety Report 10210731 (Version 1)
Quarter: 2014Q2

REPORT INFORMATION
  Report Type: Spontaneous
  Country: US (occurrence: None)
  Receive Date: 20140529
  Receipt Date: 20140529
  Transmission Date: 20141212
  Serious: Yes (Life-Threatening, Hospitalization)
  Sender: FDA-Public Use
  Company Number: None

PATIENT
  Age: 67 Year
  Sex: Female

DRUGS (3)
  1. SOLVALDI [Suspect]
     Indication: HEPATITIS C
     Dosage: 11 WEEKS, 1 TAB, QD, ORAL
     Route: 048
  2. RIBAVIRIN [Concomitant]
  3. OLYSIO [Concomitant]

REACTIONS (3)
  - Pulmonary oedema [None]
  - Haemorrhage [None]
  - Life support [None]
